FAERS Safety Report 12337707 (Version 8)
Quarter: 2017Q2

REPORT INFORMATION
  Report Type: Spontaneous
  Country: US (occurrence: US)
  Receive Date: 20160505
  Receipt Date: 20170413
  Transmission Date: 20170830
  Serious: Yes (Hospitalization)
  Sender: FDA-Public Use
  Company Number: US-ACTELION-A-NJ2016-135525

PATIENT
  Age: 35 Year
  Sex: Female
  Weight: 48.73 kg

DRUGS (4)
  1. OPSUMIT [Suspect]
     Active Substance: MACITENTAN
     Indication: PULMONARY HYPERTENSION
     Dosage: 10 MG, QD
     Route: 048
     Dates: start: 20160425
  2. WARFARIN [Concomitant]
     Active Substance: WARFARIN
  3. VELETRI [Suspect]
     Active Substance: EPOPROSTENOL
     Indication: PULMONARY HYPERTENSION
     Dosage: 22 MG/KG, PER MIN
     Route: 042
     Dates: start: 20141015
  4. VELETRI [Suspect]
     Active Substance: EPOPROSTENOL
     Dosage: 17 NG/KG, PER MIN
     Route: 042

REACTIONS (6)
  - Catheter site pain [Unknown]
  - Dyspnoea [Unknown]
  - Device occlusion [Unknown]
  - Lung disorder [Unknown]
  - Device malfunction [Unknown]
  - Catheter placement [Unknown]

NARRATIVE: CASE EVENT DATE: 20160315
